FAERS Safety Report 6245715-8 (Version None)
Quarter: 2009Q2

REPORT INFORMATION
  Report Type: 
  Country: None (occurrence: None)
  Receive Date: 20090625
  Receipt Date: 20090617
  Transmission Date: 20091009
  Serious: Yes (Other)
  Sender: FDA-Public Use
  Company Number: US-ASTRAZENECA-2009UW12593

PATIENT
  Age: 73 Year
  Sex: Female

DRUGS (9)
  1. SYMBICORT [Suspect]
     Indication: CHRONIC OBSTRUCTIVE PULMONARY DISEASE
     Dosage: 160/4.5 UG 2 PUFFS EVERY 12 HOURS
     Route: 055
     Dates: start: 20080902
  2. FISH OIL [Concomitant]
  3. FORTICOL [Concomitant]
  4. LASIX [Concomitant]
  5. NIASPAN [Concomitant]
  6. PRILOSEC [Concomitant]
     Route: 048
  7. SINGULAIR [Concomitant]
  8. SPIRIVA [Concomitant]
  9. ALBUTEROL [Concomitant]

REACTIONS (1)
  - BRONCHITIS [None]
